FAERS Safety Report 23830943 (Version 4)
Quarter: 2024Q3

REPORT INFORMATION
  Report Type: Spontaneous
  Country: CL (occurrence: CL)
  Receive Date: 20240508
  Receipt Date: 20240909
  Transmission Date: 20241016
  Serious: No
  Sender: PFIZER
  Company Number: CL-PFIZER INC-PV202400052039

PATIENT
  Age: 3 Year
  Sex: Male
  Weight: 16 kg

DRUGS (3)
  1. GENOTROPIN [Suspect]
     Active Substance: SOMATROPIN
     Indication: Growth disorder
     Dosage: UNK
     Dates: start: 20240414
  2. GENOTROPIN [Suspect]
     Active Substance: SOMATROPIN
     Dosage: UNK
     Dates: start: 20240425, end: 20240426
  3. GENOTROPIN [Suspect]
     Active Substance: SOMATROPIN
     Dosage: 0.7 ML, 1X/DAY
     Route: 058

REACTIONS (2)
  - Device defective [Recovered/Resolved]
  - Device physical property issue [Recovered/Resolved]

NARRATIVE: CASE EVENT DATE: 20240424
